FAERS Safety Report 16351380 (Version 16)
Quarter: 2022Q4

REPORT INFORMATION
  Report Type: Other
  Country: DE (occurrence: None)
  Receive Date: 20190524
  Receipt Date: 20221118
  Transmission Date: 20230113
  Serious: Yes (Hospitalization, Other)
  Sender: FDA-Public Use
  Company Number: DE-ROCHE-2232459

PATIENT
  Age: 53 Year
  Sex: Female
  Weight: 78 kg

DRUGS (17)
  1. OCREVUS [Suspect]
     Active Substance: OCRELIZUMAB
     Indication: Progressive relapsing multiple sclerosis
     Dosage: NEXT DOSE OF OCREVUS (300 MG) ON 14/JUN/2018.
     Route: 042
     Dates: start: 20180531
  2. OCREVUS [Suspect]
     Active Substance: OCRELIZUMAB
     Indication: Secondary progressive multiple sclerosis
     Dosage: 3RD INFUSION
     Route: 042
     Dates: start: 20181213
  3. OCREVUS [Suspect]
     Active Substance: OCRELIZUMAB
     Dosage: 5TH INFUSION
     Route: 042
  4. OCREVUS [Suspect]
     Active Substance: OCRELIZUMAB
     Dosage: 6TH INFUSION
     Route: 042
     Dates: start: 20200917
  5. AMANTADINE [Suspect]
     Active Substance: AMANTADINE
     Indication: Product used for unknown indication
     Route: 065
  6. LYRICA [Concomitant]
     Active Substance: PREGABALIN
  7. LYRICA [Concomitant]
     Active Substance: PREGABALIN
  8. LYRICA [Concomitant]
     Active Substance: PREGABALIN
  9. CYMBALTA [Concomitant]
     Active Substance: DULOXETINE HYDROCHLORIDE
  10. CYMBALTA [Concomitant]
     Active Substance: DULOXETINE HYDROCHLORIDE
  11. BACLOFEN [Concomitant]
     Active Substance: BACLOFEN
  12. FOLIC ACID [Concomitant]
     Active Substance: FOLIC ACID
  13. TIZANIDINE [Concomitant]
     Active Substance: TIZANIDINE
  14. TIZANIDINE [Concomitant]
     Active Substance: TIZANIDINE
     Dosage: 1-01
  15. PREGABALIN [Concomitant]
     Active Substance: PREGABALIN
  16. SOLIFENACIN [Concomitant]
     Active Substance: SOLIFENACIN
  17. DALFAMPRIDINE [Concomitant]
     Active Substance: DALFAMPRIDINE

REACTIONS (19)
  - Radius fracture [Not Recovered/Not Resolved]
  - Multiple sclerosis [Recovered/Resolved]
  - Multiple sclerosis relapse [Recovered/Resolved]
  - Pain [Not Recovered/Not Resolved]
  - Fall [Unknown]
  - Tendon rupture [Not Recovered/Not Resolved]
  - Urinary tract infection [Recovered/Resolved]
  - Productive cough [Not Recovered/Not Resolved]
  - Weight increased [Not Recovered/Not Resolved]
  - Fatigue [Recovering/Resolving]
  - Peripheral coldness [Not Recovered/Not Resolved]
  - Arthralgia [Not Recovered/Not Resolved]
  - Sciatica [Not Recovered/Not Resolved]
  - Lethargy [Recovering/Resolving]
  - Disorientation [Recovering/Resolving]
  - Disturbance in attention [Recovering/Resolving]
  - Osteoarthritis [Not Recovered/Not Resolved]
  - Asthenia [Recovered/Resolved]
  - Nasopharyngitis [Recovered/Resolved]

NARRATIVE: CASE EVENT DATE: 20180531
